FAERS Safety Report 5472509-3 (Version None)
Quarter: 2007Q3

REPORT INFORMATION
  Report Type: 
  Country: None (occurrence: None)
  Receive Date: 20070926
  Receipt Date: 20070918
  Transmission Date: 20080115
  Serious: Yes (Other)
  Sender: FDA-Public Use
  Company Number: 2007SP018979

PATIENT
  Age: 88 Year
  Sex: Female
  Weight: 72 kg

DRUGS (5)
  1. NASONEX [Suspect]
     Indication: DRUG USE FOR UNKNOWN INDICATION
     Dosage: NAS
     Route: 045
  2. SERETIDE [Concomitant]
  3. COMBIVENT [Concomitant]
  4. PERSANTIN [Concomitant]
  5. COZAAR [Concomitant]

REACTIONS (1)
  - ARRHYTHMIA [None]
